FAERS Safety Report 7638717-8 (Version None)
Quarter: 2011Q3

REPORT INFORMATION
  Report Type: 
  Country: None (occurrence: None)
  Receive Date: 20110720
  Receipt Date: 20110705
  Transmission Date: 20111222
  Serious: Yes (Disabling)
  Sender: FDA-Public Use
  Company Number: TUK2011A00090

PATIENT
  Age: 67 Year
  Sex: Female

DRUGS (8)
  1. GLICLAZIDE (GLICLAZIDE) [Concomitant]
  2. CARBOMER  (CARBOMER) [Concomitant]
  3. LANSOPRAZOLE [Concomitant]
  4. METFORMIN HCL [Concomitant]
  5. ACTOS [Suspect]
     Indication: PRODUCT USED FOR UNKNOWN INDICATION
     Dates: start: 20110315
  6. ATORVASTATIN [Concomitant]
  7. HYDROXOCOBALAMIN [Concomitant]
  8. HRT NOS (HORMONES NOS) [Concomitant]

REACTIONS (4)
  - VISION BLURRED [None]
  - DYSPNOEA [None]
  - TENSION HEADACHE [None]
  - BACK PAIN [None]
